FAERS Safety Report 23611842 (Version 3)
Quarter: 2024Q1

REPORT INFORMATION
  Report Type: Spontaneous
  Country: JP (occurrence: None)
  Receive Date: 20240308
  Receipt Date: 20240322
  Transmission Date: 20240410
  Serious: Yes (Death, Other)
  Sender: FDA-Public Use
  Company Number: 2024A056293

PATIENT
  Age: 82 Year
  Sex: Male
  Weight: 60 kg

DRUGS (2)
  1. ONDEXXYA [Suspect]
     Active Substance: ANDEXANET ALFA
     Indication: Subarachnoid haemorrhage
     Dosage: DOSE UNKNOWN 1760.0MG UNKNOWN
     Route: 042
     Dates: start: 20240225, end: 20240225
  2. RIVAROXABAN [Suspect]
     Active Substance: RIVAROXABAN
     Indication: Atrial fibrillation
     Dosage: DOSE UNKNOWN
     Route: 048

REACTIONS (2)
  - Myocardial infarction [Fatal]
  - Thrombosis [Unknown]

NARRATIVE: CASE EVENT DATE: 20240225
